FAERS Safety Report 7428349-9 (Version None)
Quarter: 2011Q2

REPORT INFORMATION
  Report Type: 
  Country: None (occurrence: None)
  Receive Date: 20110421
  Receipt Date: 20110415
  Transmission Date: 20111010
  Serious: Yes (Other)
  Sender: FDA-Public Use
  Company Number: AU-EISAI INC-E7389-00938-CLI-AU

PATIENT
  Sex: Female
  Weight: 63 kg

DRUGS (1)
  1. E7389 (BOLD) [Suspect]
     Indication: BREAST CANCER
     Dosage: UNKNOWN
     Route: 041
     Dates: start: 20080610

REACTIONS (1)
  - INFUSION SITE EXTRAVASATION [None]
